FAERS Safety Report 8716543 (Version 3)
Quarter: 2012Q4

REPORT INFORMATION
  Report Type: 
  Country: FR (occurrence: FR)
  Receive Date: 20120810
  Receipt Date: 20121120
  Transmission Date: 20130627
  Serious: Yes (Hospitalization, Other)
  Sender: FDA-Public Use
  Company Number: FR-BRISTOL-MYERS SQUIBB COMPANY-16836264

PATIENT
  Age: 90 Year
  Sex: Male

DRUGS (8)
  1. ONGLYZA TABS [Suspect]
     Dosage: 1DF: 1intake
     Route: 048
     Dates: start: 201109
  2. LAMICTAL [Suspect]
     Route: 048
     Dates: start: 201012, end: 20120523
  3. KARDEGIC [Concomitant]
  4. VASTAREL [Concomitant]
  5. TAHOR [Concomitant]
  6. IMOVANE [Concomitant]
  7. AVODART [Concomitant]
  8. SILODOSIN [Concomitant]

REACTIONS (2)
  - Pemphigoid [Recovering/Resolving]
  - Squamous cell carcinoma [Unknown]
